FAERS Safety Report 9239185 (Version 2)
Quarter: 2013Q2

REPORT INFORMATION
  Report Type: Spontaneous
  Country: US (occurrence: US)
  Receive Date: 20130418
  Receipt Date: 20130418
  Transmission Date: 20140414
  Serious: No
  Sender: FDA-Public Use
  Company Number: US-MYLANLABS-2012S1007117

PATIENT
  Age: 85 Year
  Sex: Female
  Weight: 51.26 kg

DRUGS (2)
  1. VERAPAMIL HCL EXTENDED RELEASE TABLETS [Suspect]
     Indication: BLOOD PRESSURE INCREASED
     Route: 048
     Dates: start: 201201
  2. VERAPAMIL HCL EXTENDED RELEASE TABLETS [Suspect]
     Indication: MUSCLE DISORDER
     Route: 048
     Dates: start: 201201

REACTIONS (7)
  - Hypotension [Not Recovered/Not Resolved]
  - Blood potassium decreased [Not Recovered/Not Resolved]
  - Blood sodium decreased [Not Recovered/Not Resolved]
  - Dizziness [Not Recovered/Not Resolved]
  - Feeling abnormal [Not Recovered/Not Resolved]
  - Asthenia [Not Recovered/Not Resolved]
  - Depression [Not Recovered/Not Resolved]
